FAERS Safety Report 8626005-2 (Version None)
Quarter: 2012Q3

REPORT INFORMATION
  Report Type: 
  Country: None (occurrence: None)
  Receive Date: 20120827
  Receipt Date: 20120823
  Transmission Date: 20120928
  Serious: Yes (Hospitalization)
  Sender: FDA-Public Use
  Company Number: US-ROCHE-1107823

PATIENT
  Sex: Female
  Weight: 83.536 kg

DRUGS (6)
  1. SYMBICORT [Concomitant]
  2. FLOVENT [Concomitant]
  3. SPIRIVA [Concomitant]
  4. PROAIR HFA [Concomitant]
  5. OMALIZUMAB [Suspect]
     Indication: ASTHMA
     Dosage: 2 INJECTIONS
     Route: 058
     Dates: start: 20111201
  6. SINGULAIR [Concomitant]

REACTIONS (1)
  - ASTHMA [None]
